FAERS Safety Report 5512475-5 (Version None)
Quarter: 2007Q4

REPORT INFORMATION
  Report Type: 
  Country: None (occurrence: None)
  Receive Date: 20071112
  Receipt Date: 20070417
  Transmission Date: 20080405
  Serious: No
  Sender: FDA-Public Use
  Company Number: A0647636A

PATIENT
  Age: 57 Year
  Sex: Female

DRUGS (5)
  1. AVANDAMET [Suspect]
     Route: 048
     Dates: start: 20070101
  2. THYROID TAB [Concomitant]
  3. HYZAAR [Concomitant]
  4. HUMALOG [Concomitant]
  5. HUMULIN R [Concomitant]

REACTIONS (3)
  - BLOOD INSULIN INCREASED [None]
  - DRUG INEFFECTIVE [None]
  - PHARMACEUTICAL PRODUCT COMPLAINT [None]
